FAERS Safety Report 21638389 (Version 2)
Quarter: 2022Q4

REPORT INFORMATION
  Report Type: Spontaneous
  Country: AU (occurrence: AU)
  Receive Date: 20221124
  Receipt Date: 20221129
  Transmission Date: 20230113
  Serious: Yes (Other)
  Sender: FDA-Public Use
  Company Number: AU-PFIZER INC-PV202200106941

PATIENT
  Age: 74 Year
  Sex: Male

DRUGS (13)
  1. METHOTREXATE (METHOTREXATE SODIUM) [Suspect]
     Active Substance: METHOTREXATE SODIUM
     Indication: Rheumatoid arthritis
     Dosage: 30 MG
     Route: 048
     Dates: start: 20030415
  2. ARAVA [Suspect]
     Active Substance: LEFLUNOMIDE
     Route: 048
  3. FUROSEMIDE [Concomitant]
     Active Substance: FUROSEMIDE
  4. LANSOPRAZOLE [Concomitant]
     Active Substance: LANSOPRAZOLE
  5. CANDESARTAN CILEXETIL [Concomitant]
     Active Substance: CANDESARTAN CILEXETIL
  6. CLOPIDOGREL [Concomitant]
     Active Substance: CLOPIDOGREL BISULFATE
  7. CORTISONE ACETATE [Concomitant]
     Active Substance: CORTISONE ACETATE
  8. FOLIC ACID [Concomitant]
     Active Substance: FOLIC ACID
  9. IMIPRAMINE HYDROCHLORIDE [Concomitant]
     Active Substance: IMIPRAMINE HYDROCHLORIDE
  10. NITRAZEPAM [Concomitant]
     Active Substance: NITRAZEPAM
  11. PHENYTOIN SODIUM [Concomitant]
     Active Substance: PHENYTOIN SODIUM
  12. SIMVASTATIN [Concomitant]
     Active Substance: SIMVASTATIN
  13. TRAMADOL HYDROCHLORIDE [Concomitant]
     Active Substance: TRAMADOL HYDROCHLORIDE

REACTIONS (5)
  - Neuropathy peripheral [Unknown]
  - Muscle disorder [Unknown]
  - Muscle spasms [Unknown]
  - Oedema peripheral [Unknown]
  - Muscle contractions involuntary [Unknown]
